FAERS Safety Report 20705215 (Version 1)
Quarter: 2022Q2

REPORT INFORMATION
  Report Type: Spontaneous
  Country: US (occurrence: US)
  Receive Date: 20220413
  Receipt Date: 20220413
  Transmission Date: 20220721
  Serious: No
  Sender: FDA-Public Use
  Company Number: US-AMGEN-USASP2022064450

PATIENT
  Age: 73 Year
  Sex: Female

DRUGS (7)
  1. AIMOVIG [Suspect]
     Active Substance: ERENUMAB-AOOE
     Indication: Migraine
     Dosage: UNK
     Route: 065
  2. NURTEC ODT [Suspect]
     Active Substance: RIMEGEPANT SULFATE
     Indication: Migraine
     Dosage: 75 MILLIGRAM ONCE/TWICE PER WEEK
     Route: 065
     Dates: start: 20220331
  3. SUMATRIPTAN [Concomitant]
     Active Substance: SUMATRIPTAN
  4. METOCLOPRAMIDE [Concomitant]
     Active Substance: METOCLOPRAMIDE
  5. NEURONTIN [Concomitant]
     Active Substance: GABAPENTIN
  6. BOTOX [Concomitant]
     Active Substance: ONABOTULINUMTOXINA
  7. COVID-19 VACCINE [Concomitant]

REACTIONS (1)
  - Drug ineffective [Recovered/Resolved]
